FAERS Safety Report 10064334 (Version 2)
Quarter: 2015Q1

REPORT INFORMATION
  Report Type: Spontaneous
  Country: US (occurrence: US)
  Receive Date: 20140408
  Receipt Date: 20150109
  Transmission Date: 20150720
  Serious: Yes (Other)
  Sender: FDA-Public Use
  Company Number: US-BAYER-2014-048082

PATIENT
  Age: 27 Year
  Sex: Female
  Weight: 86.17 kg

DRUGS (6)
  1. YAZ [Suspect]
     Active Substance: DROSPIRENONE\ETHINYL ESTRADIOL
     Dosage: UNK
     Route: 048
     Dates: start: 200712
  2. CLOPIDOGREL [Concomitant]
     Active Substance: CLOPIDOGREL BISULFATE
  3. MECLIZINE [Concomitant]
     Active Substance: MECLIZINE\MECLIZINE HYDROCHLORIDE
  4. NIACIN. [Concomitant]
     Active Substance: NIACIN
  5. YASMIN [Suspect]
     Active Substance: DROSPIRENONE\ETHINYL ESTRADIOL
     Dosage: UNK
     Route: 048
     Dates: start: 200712
  6. ASPIRIN. [Concomitant]
     Active Substance: ASPIRIN

REACTIONS (6)
  - Injury [Not Recovered/Not Resolved]
  - Cerebral infarction [None]
  - Pain [None]
  - Cerebrovascular accident [Not Recovered/Not Resolved]
  - Pain [Not Recovered/Not Resolved]
  - Fear of disease [None]

NARRATIVE: CASE EVENT DATE: 201103
